FAERS Safety Report 13842405 (Version 1)
Quarter: 2017Q3

REPORT INFORMATION
  Report Type: Spontaneous
  Country: US (occurrence: US)
  Receive Date: 20170807
  Receipt Date: 20170807
  Transmission Date: 20171127
  Serious: Yes (Hospitalization, Disabling, Other)
  Sender: FDA-Public Use
  Company Number: None

PATIENT
  Sex: Male
  Weight: 104.4 kg

DRUGS (16)
  1. SLIVER SULFADIAZINE CREAM [Concomitant]
  2. MIRALAX [Concomitant]
     Active Substance: POLYETHYLENE GLYCOL 3350
  3. XARELTO [Suspect]
     Active Substance: RIVAROXABAN
     Indication: DEEP VEIN THROMBOSIS
     Dosage: ?          QUANTITY:30 TABLET(S);?
     Route: 048
     Dates: start: 20170708, end: 20170711
  4. ACYCLOVIR. [Concomitant]
     Active Substance: ACYCLOVIR
  5. PANTOPRAZOLE [Concomitant]
     Active Substance: PANTOPRAZOLE
  6. LISINOPRIL. [Concomitant]
     Active Substance: LISINOPRIL
  7. LORATADINE. [Concomitant]
     Active Substance: LORATADINE
  8. LORAZEPAM. [Concomitant]
     Active Substance: LORAZEPAM
  9. COLACE [Concomitant]
     Active Substance: DOCUSATE SODIUM
  10. METOPROLOL. [Concomitant]
     Active Substance: METOPROLOL
  11. FONDAPARINUX [Concomitant]
     Active Substance: FONDAPARINUX
  12. TORSEMIDE. [Concomitant]
     Active Substance: TORSEMIDE
  13. ONDANSETRON [Concomitant]
     Active Substance: ONDANSETRON
  14. POTASSIUM [Concomitant]
     Active Substance: POTASSIUM
  15. MORPHINE [Concomitant]
     Active Substance: MORPHINE
  16. DILAUDID [Concomitant]
     Active Substance: HYDROMORPHONE HYDROCHLORIDE

REACTIONS (6)
  - Venoocclusive disease [None]
  - Skin necrosis [None]
  - Wound [None]
  - Catheter site erythema [None]
  - Rash [None]
  - Pain [None]

NARRATIVE: CASE EVENT DATE: 20170710
